FAERS Safety Report 19960225 (Version 1)
Quarter: 2021Q4

REPORT INFORMATION
  Report Type: Spontaneous
  Country: CN (occurrence: CN)
  Receive Date: 20211015
  Receipt Date: 20211015
  Transmission Date: 20220303
  Serious: Yes (Life-Threatening, Other)
  Sender: FDA-Public Use
  Company Number: CN-BAXTER-2021BAX026446

PATIENT
  Age: 67 Year
  Sex: Male
  Weight: 62 kg

DRUGS (8)
  1. CYCLOPHOSPHAMIDE [Suspect]
     Active Substance: CYCLOPHOSPHAMIDE
     Indication: Non-Hodgkin^s lymphoma
     Dosage: DILUTED WITH 100ML NS
     Route: 041
     Dates: start: 20181118, end: 20181118
  2. SODIUM CHLORIDE [Suspect]
     Active Substance: SODIUM CHLORIDE
     Indication: Medication dilution
     Dosage: DILUENT FOR PIRARUBICIN
     Route: 041
     Dates: start: 20201118, end: 20201118
  3. PIRARUBICIN HYDROCHLORIDE [Suspect]
     Active Substance: PIRARUBICIN HYDROCHLORIDE
     Indication: Non-Hodgkin^s lymphoma
     Dosage: DILUTED WITH 100ML NS
     Route: 041
     Dates: start: 20181118, end: 20181118
  4. ETOPOSIDE [Suspect]
     Active Substance: ETOPOSIDE
     Indication: Non-Hodgkin^s lymphoma
     Dosage: DILUTED WITH 500ML NS
     Route: 041
     Dates: start: 20201118, end: 20201118
  5. VINCRISTINE SULFATE [Suspect]
     Active Substance: VINCRISTINE SULFATE
     Indication: Non-Hodgkin^s lymphoma
     Dosage: DILUTED WITH 250ML NS
     Route: 041
     Dates: start: 20201118, end: 20201118
  6. SODIUM CHLORIDE [Suspect]
     Active Substance: SODIUM CHLORIDE
     Indication: Medication dilution
     Dosage: CYCLOPHOSPHAMIDE 0.8G + 0.9% SODIUM CHLORIDE INJECTION 100ML
     Route: 041
     Dates: start: 20201118, end: 20201118
  7. SODIUM CHLORIDE [Suspect]
     Active Substance: SODIUM CHLORIDE
     Dosage: ETOPOSIDE 0.1G + 0.9% SODIUM CHLORIDE INJECTION 500ML
     Route: 041
     Dates: start: 20201118, end: 20201118
  8. SODIUM CHLORIDE [Suspect]
     Active Substance: SODIUM CHLORIDE
     Dosage: VINCRISTINE 1 MG + 0.9% SODIUM CHLORIDE INJECTION 250ML
     Route: 041
     Dates: start: 20201118, end: 20201118

REACTIONS (2)
  - Leukopenia [Recovering/Resolving]
  - Myelosuppression [Unknown]

NARRATIVE: CASE EVENT DATE: 20201127
